FAERS Safety Report 14756552 (Version 2)
Quarter: 2018Q2

REPORT INFORMATION
  Report Type: Report from Study
  Country: US (occurrence: US)
  Receive Date: 20180413
  Receipt Date: 20180416
  Transmission Date: 20180711
  Serious: Yes (Hospitalization)
  Sender: FDA-Public Use
  Company Number: US-ASTRAZENECA-2018SE46160

PATIENT
  Age: 730 Month
  Sex: Female
  Weight: 75.8 kg

DRUGS (3)
  1. ALBUTEROL. [Concomitant]
     Active Substance: ALBUTEROL
     Route: 065
  2. DALIRESP [Suspect]
     Active Substance: ROFLUMILAST
     Indication: CHRONIC OBSTRUCTIVE PULMONARY DISEASE
     Route: 048
     Dates: start: 201711, end: 201803
  3. TUDORZA PRESSAIR [Suspect]
     Active Substance: ACLIDINIUM BROMIDE
     Route: 055
     Dates: end: 20180409

REACTIONS (15)
  - Respiratory failure [Recovered/Resolved]
  - Influenza [Unknown]
  - Dyspnoea [Recovered/Resolved]
  - Memory impairment [Not Recovered/Not Resolved]
  - Tremor [Recovering/Resolving]
  - Fear [Recovered/Resolved]
  - Hallucination [Unknown]
  - Therapy cessation [Unknown]
  - Malaise [Recovered/Resolved]
  - Dysstasia [Recovering/Resolving]
  - Dysgeusia [Unknown]
  - Pneumonia [Unknown]
  - Dizziness [Unknown]
  - Wrong technique in product usage process [Unknown]
  - Bronchitis [Unknown]

NARRATIVE: CASE EVENT DATE: 201803
